FAERS Safety Report 5101200-8 (Version None)
Quarter: 2006Q3

REPORT INFORMATION
  Report Type: 
  Country: None (occurrence: None)
  Receive Date: 20060911
  Receipt Date: 20060829
  Transmission Date: 20061208
  Serious: Yes (Hospitalization)
  Sender: FDA-Public Use
  Company Number: US-AMGEN-US191981

PATIENT
  Sex: Female

DRUGS (2)
  1. PROCRIT [Suspect]
     Indication: ANAEMIA OF MALIGNANT DISEASE
     Route: 058
     Dates: start: 20020101
  2. LEVAQUIN [Concomitant]

REACTIONS (5)
  - FULL BLOOD COUNT DECREASED [None]
  - HAEMORRHAGE [None]
  - MITRAL VALVE REPLACEMENT [None]
  - PNEUMONIA [None]
  - SINUS OPERATION [None]
